FAERS Safety Report 5986601-8 (Version None)
Quarter: 2008Q4

REPORT INFORMATION
  Report Type: 
  Country: None (occurrence: None)
  Receive Date: 20081209
  Receipt Date: 20080909
  Transmission Date: 20090506
  Serious: No
  Sender: FDA-Public Use
  Company Number: US-AMGEN-KDL306665

PATIENT
  Age: 69 Year
  Sex: Female

DRUGS (6)
  1. ENBREL [Suspect]
     Indication: PSORIASIS
     Route: 058
  2. SORIATANE [Concomitant]
  3. ZOCOR [Concomitant]
  4. ZESTRIL [Concomitant]
  5. INSULIN [Concomitant]
  6. SYNTHROID [Concomitant]

REACTIONS (1)
  - TUBERCULIN TEST POSITIVE [None]
